FAERS Safety Report 21455392 (Version 2)
Quarter: 2022Q4

REPORT INFORMATION
  Report Type: Report from Study
  Country: US (occurrence: US)
  Receive Date: 20221014
  Receipt Date: 20221111
  Transmission Date: 20230113
  Serious: Yes (Hospitalization, Other)
  Sender: FDA-Public Use
  Company Number: US-ABBVIE-22K-163-4480852-00

PATIENT
  Sex: Male
  Weight: 109 kg

DRUGS (9)
  1. SKYRIZI [Suspect]
     Active Substance: RISANKIZUMAB-RZAA
     Indication: Psoriasis
     Route: 058
     Dates: start: 2021
  2. SKYRIZI [Suspect]
     Active Substance: RISANKIZUMAB-RZAA
     Route: 058
     Dates: start: 2021, end: 2021
  3. AMLODIPINE [Concomitant]
     Active Substance: AMLODIPINE BESYLATE
     Indication: Hypertension
  4. KETOCONAZOLE [Concomitant]
     Active Substance: KETOCONAZOLE
     Indication: Psoriasis
  5. TAMSULOSIN [Concomitant]
     Active Substance: TAMSULOSIN
     Indication: Prostatomegaly
  6. MODERNA COVID-19 VACCINE [Concomitant]
     Active Substance: ELASOMERAN
     Indication: COVID-19 immunisation
     Dosage: 1 IN ONCE (2ND DOSE)
     Route: 030
     Dates: start: 20210408, end: 20210408
  7. MODERNA COVID-19 VACCINE [Concomitant]
     Active Substance: ELASOMERAN
     Indication: COVID-19 immunisation
     Dosage: 1 IN ONCE(1ST DOS)
     Route: 030
     Dates: start: 20210311, end: 20210311
  8. MODERNA COVID-19 VACCINE [Concomitant]
     Active Substance: ELASOMERAN
     Indication: COVID-19 immunisation
     Dosage: 1 IN ONCE ( BOOSTER DOSE)
     Route: 030
     Dates: start: 20211117, end: 20211117
  9. BENAZEPRIL AND HYDROCHLOROTHIAZIDE [Concomitant]
     Active Substance: BENAZEPRIL HYDROCHLORIDE\HYDROCHLOROTHIAZIDE
     Indication: Hypertension

REACTIONS (13)
  - Urinary retention [Recovered/Resolved]
  - Erythema [Recovering/Resolving]
  - COVID-19 [Recovered/Resolved]
  - Hernia [Recovering/Resolving]
  - Pruritus [Recovering/Resolving]
  - Hypersomnia [Recovered/Resolved]
  - Oropharyngeal pain [Recovered/Resolved]
  - Influenza like illness [Unknown]
  - Chills [Recovered/Resolved]
  - Inflammation [Unknown]
  - Pyrexia [Recovered/Resolved]
  - Hypersensitivity [Unknown]
  - Headache [Recovered/Resolved]

NARRATIVE: CASE EVENT DATE: 20210101
